FAERS Safety Report 14476804 (Version 2)
Quarter: 2018Q1

REPORT INFORMATION
  Report Type: Spontaneous
  Country: US (occurrence: US)
  Receive Date: 20180201
  Receipt Date: 20180214
  Transmission Date: 20180509
  Serious: No
  Sender: FDA-Public Use
  Company Number: US-VIFOR (INTERNATIONAL) INC.-VIT-2018-00880

PATIENT
  Sex: Female

DRUGS (15)
  1. BIOTIN MAXIMUM STRENGTH [Concomitant]
  2. SIMVASTATIN. [Concomitant]
     Active Substance: SIMVASTATIN
  3. D3 MAXIMUM STRENGTH [Concomitant]
  4. CLONIDINE HYDROCHLORIDE. [Concomitant]
     Active Substance: CLONIDINE HYDROCHLORIDE
  5. PROLIA [Concomitant]
     Active Substance: DENOSUMAB
  6. SODIUM BICARBONATE. [Concomitant]
     Active Substance: SODIUM BICARBONATE
  7. CENTRUM SILVER 50+ WOMEN [Concomitant]
  8. FISH OIL [Concomitant]
     Active Substance: FISH OIL
  9. COLCRYS [Concomitant]
     Active Substance: COLCHICINE
  10. NATEGLINIDE. [Concomitant]
     Active Substance: NATEGLINIDE
  11. VALSARTAN. [Concomitant]
     Active Substance: VALSARTAN
  12. VELTASSA [Suspect]
     Active Substance: PATIROMER
     Indication: HYPERKALAEMIA
     Route: 048
     Dates: start: 20171006
  13. ASPIRIN CHILDREN [Concomitant]
     Active Substance: ASPIRIN
  14. BREO ELLIPTA [Concomitant]
     Active Substance: FLUTICASONE FUROATE\VILANTEROL TRIFENATATE
  15. MAGNESIUM OXIDE. [Concomitant]
     Active Substance: MAGNESIUM OXIDE

REACTIONS (1)
  - Peripheral swelling [Not Recovered/Not Resolved]
